FAERS Safety Report 5930031-1 (Version None)
Quarter: 2008Q4

REPORT INFORMATION
  Report Type: 
  Country: None (occurrence: None)
  Receive Date: 20081024
  Receipt Date: 20081014
  Transmission Date: 20090506
  Serious: Yes (Hospitalization)
  Sender: FDA-Public Use
  Company Number: AR-PFIZER INC-2008084487

PATIENT
  Sex: Male
  Weight: 56 kg

DRUGS (5)
  1. SU-011,248 [Suspect]
     Indication: RENAL CELL CARCINOMA
     Route: 048
     Dates: start: 20071016, end: 20081001
  2. HYDROCHLOROTHIAZIDE [Concomitant]
     Route: 048
     Dates: start: 20030101
  3. OMEPRAZOLE [Concomitant]
     Route: 048
     Dates: start: 20070101
  4. METOCLOPRAMIDE [Concomitant]
     Route: 048
     Dates: start: 20081002
  5. BETAMETHASONE VALERATE/GENTAMICIN/MICONAZOLE NITRATE [Concomitant]
     Route: 061
     Dates: start: 20081002

REACTIONS (4)
  - ABDOMINAL PAIN [None]
  - ANAEMIA [None]
  - PALMAR-PLANTAR ERYTHRODYSAESTHESIA SYNDROME [None]
  - RENAL FAILURE ACUTE [None]
